FAERS Safety Report 25807779 (Version 1)
Quarter: 2025Q3

REPORT INFORMATION
  Report Type: Spontaneous
  Country: US (occurrence: US)
  Receive Date: 20250916
  Receipt Date: 20250916
  Transmission Date: 20251020
  Serious: Yes (Other)
  Sender: BRISTOL-MYERS SQUIBB COMPANY
  Company Number: US-BRISTOL-MYERS SQUIBB COMPANY-2025-123571

PATIENT
  Age: 63 Year
  Sex: Female

DRUGS (1)
  1. REVLIMID [Suspect]
     Active Substance: LENALIDOMIDE
     Indication: Plasma cell myeloma
     Dosage: REVLIMID 10 MG CAPSULES 100/BO: 10MG
     Dates: start: 20210413

REACTIONS (5)
  - Pain [Unknown]
  - Pyelonephritis [Unknown]
  - Renal infarct [Unknown]
  - Transitional cell carcinoma [Unknown]
  - Renal mass [Unknown]

NARRATIVE: CASE EVENT DATE: 20250806
